FAERS Safety Report 12401213 (Version 1)
Quarter: 2016Q2

REPORT INFORMATION
  Report Type: Spontaneous
  Country: US (occurrence: None)
  Receive Date: 20160524
  Receipt Date: 20160524
  Transmission Date: 20160815
  Serious: No
  Sender: FDA-Public Use
  Company Number: None

PATIENT
  Sex: Female

DRUGS (1)
  1. HARVONI [Suspect]
     Active Substance: LEDIPASVIR\SOFOSBUVIR
     Route: 048
     Dates: start: 20151203

REACTIONS (4)
  - Gastrooesophageal reflux disease [None]
  - Mood altered [None]
  - Abdominal pain upper [None]
  - Fatigue [None]
